FAERS Safety Report 24028618 (Version 4)
Quarter: 2024Q4

REPORT INFORMATION
  Report Type: Report from Study
  Country: CA (occurrence: CA)
  Receive Date: 20240628
  Receipt Date: 20241223
  Transmission Date: 20250114
  Serious: Yes (Death, Hospitalization)
  Sender: CHIESI
  Company Number: CA-CHIESI-2024CHF03778

PATIENT
  Age: 21 Year
  Sex: Female
  Weight: 41.5 kg

DRUGS (4)
  1. DEFERIPRONE [Suspect]
     Active Substance: DEFERIPRONE
     Indication: Thalassaemia
     Dosage: 1000 MILLIGRAM, BID
     Route: 048
     Dates: start: 20240316
  2. DEFERIPRONE [Suspect]
     Active Substance: DEFERIPRONE
     Dosage: UNK
     Route: 048
     Dates: start: 20240513
  3. DEFERIPRONE [Suspect]
     Active Substance: DEFERIPRONE
     Dosage: UNK
     Route: 048
     Dates: start: 20170808, end: 20171128
  4. DEFERIPRONE [Suspect]
     Active Substance: DEFERIPRONE
     Dosage: 500 MILLIGRAM, TID
     Route: 048
     Dates: start: 20171128, end: 20171213

REACTIONS (4)
  - Acute respiratory distress syndrome [Fatal]
  - Respiratory failure [Unknown]
  - Off label use [Recovered/Resolved]
  - Off label use [Recovered/Resolved]

NARRATIVE: CASE EVENT DATE: 20171128
